FAERS Safety Report 9518176 (Version 1)
Quarter: 2013Q1

REPORT INFORMATION
  Report Type: Spontaneous
  Country: US (occurrence: None)
  Receive Date: 20130305
  Receipt Date: 20130305
  Transmission Date: 20140127
  Serious: Yes (Other)
  Sender: FDA-Public Use
  Company Number: 163-21880-12121214

PATIENT
  Sex: 0

DRUGS (3)
  1. REVLIMID (LENALIDOMIDE) (CAPSULES) [Suspect]
     Indication: NON-HODGKIN^S LYMPHOMA
     Dosage: 15 MG, 21 IN 28 D, PO
     Route: 048
  2. OFATUMUMAS (OFATUMUMAB) (UNKNOWN) [Concomitant]
     Dosage: 1000 MG, 1 IN 1 W , UNK
  3. ASPIRIN (ACETYLSALICYLIC ACID) [Concomitant]

REACTIONS (1)
  - Neutropenia [None]
